FAERS Safety Report 8478901-7 (Version None)
Quarter: 2012Q2

REPORT INFORMATION
  Report Type: 
  Country: None (occurrence: None)
  Receive Date: 20120629
  Receipt Date: 20120620
  Transmission Date: 20120825
  Serious: Yes (Death, Hospitalization)
  Sender: FDA-Public Use
  Company Number: JP-ROCHE-1080920

PATIENT
  Age: 61 Year
  Sex: Female

DRUGS (5)
  1. OXALIPLATIN [Concomitant]
     Indication: COLON CANCER METASTATIC
     Dosage: DOSAGE IS UNCERTAIN.
     Route: 041
     Dates: start: 20090101
  2. FLUOROURACIL [Concomitant]
     Indication: COLON CANCER METASTATIC
     Dosage: DOSAGE IS UNCERTAIN.
     Route: 040
     Dates: start: 20090101
  3. FLUOROURACIL [Concomitant]
     Dosage: DOSAGE IS UNCERTAIN.
     Route: 041
     Dates: start: 20090101
  4. AVASTIN [Suspect]
     Indication: COLON CANCER METASTATIC
     Dosage: DOSAFE IS UNCERTAIN. 2 COURSE
     Route: 041
     Dates: start: 20090101
  5. LEVOLEUCOVORIN CALCIUM [Concomitant]
     Indication: COLON CANCER METASTATIC
     Dosage: DOSAGE IS UNCERTAIN.
     Route: 041
     Dates: start: 20090101

REACTIONS (4)
  - VENOUS THROMBOSIS LIMB [None]
  - DECREASED APPETITE [None]
  - NAUSEA [None]
  - DISEASE PROGRESSION [None]
